FAERS Safety Report 16335352 (Version 4)
Quarter: 2019Q3

REPORT INFORMATION
  Report Type: Report from Study
  Country: RS (occurrence: RS)
  Receive Date: 20190521
  Receipt Date: 20190721
  Transmission Date: 20191004
  Serious: Yes (Other)
  Sender: FDA-Public Use
  Company Number: RS-TEVA-2019-RS-1049881

PATIENT
  Age: 9 Year
  Sex: Female
  Weight: 29 kg

DRUGS (1)
  1. DEUTETRABENAZINE [Suspect]
     Active Substance: DEUTETRABENAZINE
     Indication: TOURETTE^S DISORDER
     Dosage: 30 MILLIGRAM DAILY;
     Route: 048
     Dates: start: 20190121, end: 20190509

REACTIONS (1)
  - Self-injurious ideation [Recovered/Resolved]

NARRATIVE: CASE EVENT DATE: 20190506
